FAERS Safety Report 5646806-2 (Version None)
Quarter: 2008Q1

REPORT INFORMATION
  Report Type: 
  Country: None (occurrence: None)
  Receive Date: 20080303
  Receipt Date: 20080220
  Transmission Date: 20080703
  Serious: Yes (Death, Hospitalization)
  Sender: FDA-Public Use
  Company Number: US-BRISTOL-MYERS SQUIBB COMPANY-14063564

PATIENT
  Age: 52 Year
  Sex: Male

DRUGS (11)
  1. ABATACEPT [Suspect]
     Indication: RHEUMATOID ARTHRITIS
     Dosage: ABATACEPT 06-NOV-2006 TO 31-JAN-2007.
     Route: 058
     Dates: start: 20070201
  2. PREDNISONE TAB [Concomitant]
     Route: 048
  3. PREVACID [Concomitant]
     Route: 048
  4. ATROVENT [Concomitant]
     Dosage: DOSAGE FORM = PUFF.
  5. METHOTREXATE [Concomitant]
     Route: 048
  6. FOLIC ACID [Concomitant]
     Route: 048
  7. ACTONEL [Concomitant]
     Route: 048
  8. ASPIRIN [Concomitant]
     Route: 048
  9. ALBUTEROL [Concomitant]
     Dosage: 1DOSAGE FORM =1-2 PUFFS
  10. FLOVENT [Concomitant]
     Dosage: DOSAGE FORM = PUFFS.
  11. VYTORIN [Concomitant]
     Dosage: DOSAGE FORM = TAB

REACTIONS (4)
  - ACUTE RESPIRATORY FAILURE [None]
  - PNEUMONIA [None]
  - RENAL FAILURE ACUTE [None]
  - SEPSIS [None]
